FAERS Safety Report 11721293 (Version 2)
Quarter: 2015Q4

REPORT INFORMATION
  Report Type: Spontaneous
  Country: DE (occurrence: DE)
  Receive Date: 20151111
  Receipt Date: 20151130
  Transmission Date: 20160304
  Serious: Yes (Life-Threatening)
  Sender: FDA-Public Use
  Company Number: DE-ROCHE-1659405

PATIENT
  Age: 45 Year
  Sex: Female
  Weight: 70 kg

DRUGS (5)
  1. MABTHERA [Suspect]
     Active Substance: RITUXIMAB
     Indication: RHEUMATOID ARTHRITIS
     Dosage: FIRST CYCLE
     Route: 042
     Dates: start: 20150120
  2. MABTHERA [Suspect]
     Active Substance: RITUXIMAB
     Dosage: FIRST CYCLE
     Route: 065
     Dates: start: 20150204
  3. MABTHERA [Suspect]
     Active Substance: RITUXIMAB
     Dosage: SECOND CYCLE
     Route: 065
     Dates: start: 20150901, end: 20150901
  4. PREDNISOLONE. [Concomitant]
     Active Substance: PREDNISOLONE
     Indication: RHEUMATOID ARTHRITIS
     Route: 048
     Dates: start: 20040920
  5. MABTHERA [Suspect]
     Active Substance: RITUXIMAB
     Dosage: SECOND CYCLE
     Route: 065
     Dates: start: 20150818

REACTIONS (1)
  - Interstitial lung disease [Recovering/Resolving]

NARRATIVE: CASE EVENT DATE: 20151012
